FAERS Safety Report 9870195 (Version 1)
Quarter: 2014Q1

REPORT INFORMATION
  Report Type: Spontaneous
  Country: US (occurrence: None)
  Receive Date: 20140204
  Receipt Date: 20140204
  Transmission Date: 20141002
  Serious: No
  Sender: FDA-Public Use
  Company Number: None

PATIENT
  Age: 39 None
  Sex: Female
  Weight: 88.45 kg

DRUGS (19)
  1. PENTASA [Suspect]
     Indication: CROHN^S DISEASE
     Dosage: 2 CAPSULES(4X DAILY) BY MOUTH
     Route: 048
     Dates: start: 20131223, end: 20140122
  2. ENTOCORT [Concomitant]
  3. LEVOCETIRIZINE [Concomitant]
  4. RECTIV [Concomitant]
  5. ARMOUR THYROID [Concomitant]
  6. FLUTICASONE [Concomitant]
  7. METHYLCOBALAMIN [Concomitant]
  8. VITAMIN D [Concomitant]
  9. VITAPRIME MULTI-VITAMIN(PROTHERABRAND) [Concomitant]
  10. HEATHER^S TUMMY FIBER [Concomitant]
  11. FISH OIL [Concomitant]
  12. CHEWABLE MICHAEL MURRAY TRANQUIL SLEEP [Concomitant]
  13. THERBIOTIC FACTOR 4(BIFIDOBACTERIA) [Concomitant]
  14. MAG GLYCINATE [Concomitant]
  15. CALCIUM CITRATE [Concomitant]
  16. ZINLORI(ZINC CARNOSINE) [Concomitant]
  17. GLA [Concomitant]
  18. BIO AE-MULSIOIN-FORTE(VITAMIN A) [Concomitant]
  19. TAURINE [Concomitant]

REACTIONS (3)
  - Hyperhidrosis [None]
  - Chest discomfort [None]
  - Pericarditis [None]
